FAERS Safety Report 6541413-1 (Version None)
Quarter: 2010Q1

REPORT INFORMATION
  Report Type: 
  Country: None (occurrence: None)
  Receive Date: 20100118
  Receipt Date: 20091210
  Transmission Date: 20100710
  Serious: Yes (Hospitalization)
  Sender: FDA-Public Use
  Company Number: US-JNJFOC-20091203834

PATIENT
  Age: 4 Decade
  Sex: Male

DRUGS (2)
  1. INVEGA SUSTENNA [Suspect]
     Indication: SCHIZOPHRENIA
     Route: 030
  2. INVEGA SUSTENNA [Suspect]
     Route: 030

REACTIONS (3)
  - DISTURBANCE IN SOCIAL BEHAVIOUR [None]
  - DRUG INEFFECTIVE [None]
  - SCHIZOPHRENIA [None]
